FAERS Safety Report 10097558 (Version 7)
Quarter: 2015Q2

REPORT INFORMATION
  Report Type: Report from Study
  Country: US (occurrence: US)
  Receive Date: 20140423
  Receipt Date: 20150609
  Transmission Date: 20150821
  Serious: Yes (Other)
  Sender: FDA-Public Use
  Company Number: US-BIOGENIDEC-2014BI035304

PATIENT
  Age: 35 Year
  Sex: Female

DRUGS (2)
  1. TECFIDERA [Suspect]
     Active Substance: DIMETHYL FUMARATE
     Indication: MULTIPLE SCLEROSIS
     Dates: start: 20140214
  2. TECFIDERA [Suspect]
     Active Substance: DIMETHYL FUMARATE
     Indication: MULTIPLE SCLEROSIS
     Route: 048
     Dates: start: 20140225

REACTIONS (17)
  - White blood cell count decreased [Not Recovered/Not Resolved]
  - Memory impairment [Not Recovered/Not Resolved]
  - Erythema [Not Recovered/Not Resolved]
  - Stress [Not Recovered/Not Resolved]
  - Malaise [Not Recovered/Not Resolved]
  - Rash [Recovered/Resolved]
  - Hot flush [Not Recovered/Not Resolved]
  - Dizziness [Not Recovered/Not Resolved]
  - Dysphagia [Recovered/Resolved]
  - Fatigue [Not Recovered/Not Resolved]
  - Anaemia [Not Recovered/Not Resolved]
  - Adverse event [Unknown]
  - White blood cell count increased [Unknown]
  - Pruritus [Not Recovered/Not Resolved]
  - Somnolence [Not Recovered/Not Resolved]
  - Skin discolouration [Not Recovered/Not Resolved]
  - Flushing [Not Recovered/Not Resolved]

NARRATIVE: CASE EVENT DATE: 201402
